FAERS Safety Report 8696422 (Version 3)
Quarter: 2012Q4

REPORT INFORMATION
  Report Type: 
  Country: US (occurrence: US)
  Receive Date: 20120801
  Receipt Date: 20121010
  Transmission Date: 20130627
  Serious: Yes (Death, Other)
  Sender: FDA-Public Use
  Company Number: PHEH2012US014825

PATIENT
  Sex: Female

DRUGS (1)
  1. ZOMETA [Suspect]
     Route: 042

REACTIONS (5)
  - Death [Fatal]
  - Metastases to bone [Unknown]
  - Neoplasm malignant [Unknown]
  - Neoplasm progression [Unknown]
  - Blood calcium increased [Unknown]
